FAERS Safety Report 4990941-9 (Version None)
Quarter: 2006Q2

REPORT INFORMATION
  Report Type: 
  Country: None (occurrence: None)
  Receive Date: 20060503
  Receipt Date: 20060425
  Transmission Date: 20061013
  Serious: Yes (Hospitalization)
  Sender: FDA-Public Use
  Company Number: US-MERCK-0604USA04071

PATIENT
  Age: 75 Year
  Sex: Male

DRUGS (7)
  1. DECADRON [Suspect]
     Route: 048
  2. DECADRON [Suspect]
     Route: 048
  3. VINCRISTINE SULFATE [Suspect]
     Indication: CHEMOTHERAPY
     Route: 065
  4. THALOMID [Suspect]
     Route: 065
  5. DOXIL [Suspect]
     Indication: CHEMOTHERAPY
     Route: 065
  6. MINTEZOL [Suspect]
     Route: 048
  7. ADRIAMYCIN PFS [Suspect]
     Indication: CHEMOTHERAPY
     Route: 065

REACTIONS (7)
  - DEHYDRATION [None]
  - EROSIVE DUODENITIS [None]
  - GASTRITIS EROSIVE [None]
  - NAUSEA [None]
  - STRONGYLOIDIASIS [None]
  - VOMITING [None]
  - WEIGHT DECREASED [None]
